FAERS Safety Report 21065288 (Version 3)
Quarter: 2024Q2

REPORT INFORMATION
  Report Type: Report from Study
  Country: IT (occurrence: IT)
  Receive Date: 20220711
  Receipt Date: 20240527
  Transmission Date: 20240716
  Serious: Yes (Life-Threatening, Hospitalization, Other)
  Sender: FDA-Public Use
  Company Number: IT-NOVARTISPH-NVSC2022IT156164

PATIENT
  Age: 60 Year
  Sex: Male
  Weight: 60 kg

DRUGS (5)
  1. PIQRAY [Suspect]
     Active Substance: ALPELISIB
     Indication: Prostate cancer metastatic
     Dosage: 300 MG, QD
     Route: 048
     Dates: start: 20220614, end: 20220626
  2. AMLODIPINE [Concomitant]
     Active Substance: AMLODIPINE BESYLATE
     Indication: Hypertension
     Dosage: 5 MG, UNKNOWN
     Route: 065
     Dates: end: 20220626
  3. SILODOSIN [Concomitant]
     Active Substance: SILODOSIN
     Indication: Benign prostatic hyperplasia
     Dosage: 8 MG, UNKNOWN
     Route: 065
     Dates: end: 20220626
  4. PREDNISONE [Concomitant]
     Active Substance: PREDNISONE
     Indication: Supportive care
     Dosage: 12.5 MG, UNKNOWN
     Route: 065
     Dates: end: 20220626
  5. ELIGARD [Concomitant]
     Active Substance: LEUPROLIDE ACETATE
     Indication: Chronic kidney disease
     Dosage: 22.5 MG EVERY 3 MONTHS
     Route: 065

REACTIONS (9)
  - Diabetic metabolic decompensation [Recovered/Resolved]
  - Confusional state [Unknown]
  - Fatigue [Unknown]
  - Hyperglycaemia [Unknown]
  - Diarrhoea [Recovered/Resolved]
  - Dehydration [Unknown]
  - Metastases to liver [Unknown]
  - Metastases to bone [Unknown]
  - Asthenia [Recovered/Resolved]

NARRATIVE: CASE EVENT DATE: 20220626
